FAERS Safety Report 15131246 (Version 3)
Quarter: 2019Q2

REPORT INFORMATION
  Report Type: Report from Study
  Country: CN (occurrence: CN)
  Receive Date: 20180711
  Receipt Date: 20190426
  Transmission Date: 20190711
  Serious: Yes (Death)
  Sender: FDA-Public Use
  Company Number: PHHO2018CN008123

PATIENT
  Age: 63 Year
  Sex: Female
  Weight: 48 kg

DRUGS (8)
  1. SHUANG HONG LING [Concomitant]
     Indication: COUGH
     Dosage: 1 DF, QD
     Route: 048
     Dates: start: 20180406, end: 20180525
  2. PENICILLINE [Concomitant]
     Active Substance: PENICILLIN
     Indication: COUGH
     Dosage: UNK
     Route: 065
     Dates: start: 20180418, end: 20180420
  3. EVEROLIMUS. [Suspect]
     Active Substance: EVEROLIMUS
     Indication: BREAST CANCER METASTATIC
     Dosage: 10 MG, QD
     Route: 048
     Dates: start: 20180404, end: 20180612
  4. CODEINE [Concomitant]
     Active Substance: CODEINE
     Indication: COUGH
     Dosage: 1 DF, QD
     Route: 048
     Dates: start: 20180406, end: 20180521
  5. COMPARATOR EXEMESTANE [Suspect]
     Active Substance: EXEMESTANE
     Indication: BREAST CANCER METASTATIC
     Dosage: 25 MG, QD
     Route: 048
     Dates: start: 20180404
  6. LICORICE. [Concomitant]
     Active Substance: LICORICE
     Indication: COUGH
     Dosage: 10 DF, QD
     Route: 048
     Dates: start: 20180406, end: 20180521
  7. DEXAMETHASONE. [Concomitant]
     Active Substance: DEXAMETHASONE
     Indication: COUGH
     Dosage: UNK
     Route: 065
     Dates: start: 20180418, end: 20180420
  8. LEVOFLOXACIN. [Concomitant]
     Active Substance: LEVOFLOXACIN
     Indication: COUGH
     Dosage: 0.5 G, QD
     Route: 042
     Dates: start: 20180522, end: 20180525

REACTIONS (1)
  - Vomiting [Fatal]

NARRATIVE: CASE EVENT DATE: 20180619
